FAERS Safety Report 13703050 (Version 2)
Quarter: 2017Q3

REPORT INFORMATION
  Report Type: Spontaneous
  Country: US (occurrence: US)
  Receive Date: 20170629
  Receipt Date: 20170711
  Transmission Date: 20171127
  Serious: Yes (Other)
  Sender: FDA-Public Use
  Company Number: US-AMGEN-USASP2017093942

PATIENT
  Sex: Female

DRUGS (3)
  1. REPATHA [Suspect]
     Active Substance: EVOLOCUMAB
     Dosage: 420 MG, QMO
     Route: 065
  2. PLAQUENIL [Concomitant]
     Active Substance: HYDROXYCHLOROQUINE SULFATE
  3. REPATHA [Suspect]
     Active Substance: EVOLOCUMAB
     Indication: PRODUCT USED FOR UNKNOWN INDICATION
     Dosage: UNK UNK, QMO (EVERY 28 DAYS)
     Route: 065
     Dates: start: 2014

REACTIONS (5)
  - Peripheral artery occlusion [Not Recovered/Not Resolved]
  - Blood triglycerides increased [Unknown]
  - Iliac artery occlusion [Not Recovered/Not Resolved]
  - Antinuclear antibody increased [Unknown]
  - Constipation [Unknown]

NARRATIVE: CASE EVENT DATE: 20170525
